FAERS Safety Report 6546785-X (Version None)
Quarter: 2010Q1

REPORT INFORMATION
  Report Type: 
  Country: None (occurrence: None)
  Receive Date: 20100119
  Receipt Date: 20100104
  Transmission Date: 20100710
  Serious: Yes (Death)
  Sender: FDA-Public Use
  Company Number: 2010AC000009

PATIENT
  Age: 69 Year
  Sex: Male

DRUGS (36)
  1. DIGOXIN [Suspect]
     Dosage: 0.25 MG; QD; PO
     Route: 048
     Dates: start: 20070701
  2. SYNTHROID [Concomitant]
  3. XOPENEX [Concomitant]
  4. PRINIVIL [Concomitant]
  5. PACERONE [Concomitant]
  6. LANTUS [Concomitant]
  7. FUROSEMIDE [Concomitant]
  8. ASPIRIN [Concomitant]
  9. THEO-DUR [Concomitant]
  10. K-DUR [Concomitant]
  11. IMDUR [Concomitant]
  12. NORCO [Concomitant]
  13. NOVOLIN [Concomitant]
  14. LEVAQUIN [Concomitant]
  15. CLINDAMYCIN [Concomitant]
  16. MS CONTIN [Concomitant]
  17. COREG [Concomitant]
  18. FERROUS SULFATE TAB [Concomitant]
  19. HYDROCODONE [Concomitant]
  20. HYDROXYZINE [Concomitant]
  21. INSULIN [Concomitant]
  22. HUMALOG [Concomitant]
  23. LAMOTRIGINE [Concomitant]
  24. LISINOPRIL [Concomitant]
  25. POTASSIUM [Concomitant]
  26. PRIMIDONE [Concomitant]
  27. QUETIAPINE [Concomitant]
  28. LIPITOR [Concomitant]
  29. ZAROXOLYN [Concomitant]
  30. PAXIL [Concomitant]
  31. AMIODARONE [Concomitant]
  32. GLUCOPHAGE [Concomitant]
  33. LEVOXYL [Concomitant]
  34. PROTONIX [Concomitant]
  35. PRILOSEC [Concomitant]
  36. PROZAC [Concomitant]

REACTIONS (10)
  - ACUTE RESPIRATORY FAILURE [None]
  - ANAEMIA [None]
  - CARDIAC FAILURE CONGESTIVE [None]
  - CARDIO-RESPIRATORY ARREST [None]
  - CORONARY ARTERY DISEASE [None]
  - ECONOMIC PROBLEM [None]
  - HYPOXIC ENCEPHALOPATHY [None]
  - MULTIPLE INJURIES [None]
  - RENAL FAILURE ACUTE [None]
  - SEPSIS [None]
